FAERS Safety Report 4318666-3 (Version None)
Quarter: 2004Q1

REPORT INFORMATION
  Report Type: 
  Country: None (occurrence: None)
  Receive Date: 20040315
  Receipt Date: 20040315
  Transmission Date: 20041129
  Serious: Yes (Other)
  Sender: FDA-Public Use
  Company Number: None

PATIENT
  Age: 36 Year
  Sex: Female

DRUGS (11)
  1. ZOLOFT [Suspect]
     Indication: NEURALGIA
     Dosage: 150 MG ONCE DAILY ORAL
     Route: 048
     Dates: start: 20010515, end: 20040116
  2. ARACHIOPRINE [Concomitant]
  3. ATENOLOL [Concomitant]
  4. MS CONTIN [Concomitant]
  5. CARBAMAZOPINE [Concomitant]
  6. WARFARIN SODIUM [Concomitant]
  7. CELEBREX [Concomitant]
  8. TIZANIDINE HCL [Concomitant]
  9. ZOLOFT [Concomitant]
  10. BACTRIM DS [Concomitant]
  11. MICRONOR [Concomitant]

REACTIONS (3)
  - BREAST PAIN [None]
  - GALACTORRHOEA [None]
  - TENDERNESS [None]
